FAERS Safety Report 13377932 (Version 1)
Quarter: 2017Q1

REPORT INFORMATION
  Report Type: Spontaneous
  Country: FR (occurrence: FR)
  Receive Date: 20170328
  Receipt Date: 20170328
  Transmission Date: 20170429
  Serious: Yes (Life-Threatening, Other)
  Sender: FDA-Public Use
  Company Number: FR-BRISTOL-MYERS SQUIBB COMPANY-BMS-2017-024780

PATIENT
  Age: 31 Year
  Sex: Male

DRUGS (2)
  1. ABILIFY [Suspect]
     Active Substance: ARIPIPRAZOLE
     Indication: BIPOLAR DISORDER
     Dosage: 30 MG, QD
     Route: 065
     Dates: start: 201502
  2. LITHIUM CARBONATE. [Suspect]
     Active Substance: LITHIUM CARBONATE
     Indication: BIPOLAR DISORDER
     Dosage: 800 MG, QD
     Route: 065
     Dates: start: 201502

REACTIONS (6)
  - Agitation [Unknown]
  - Toxicity to various agents [Unknown]
  - Nervous system disorder [Unknown]
  - Intentional overdose [Unknown]
  - Cerebellar syndrome [Unknown]
  - Suicide attempt [Unknown]
